FAERS Safety Report 5738363-7 (Version None)
Quarter: 2008Q2

REPORT INFORMATION
  Report Type: 
  Country: None (occurrence: None)
  Receive Date: 20080513
  Receipt Date: 20080409
  Transmission Date: 20081010
  Serious: Yes (Other)
  Sender: FDA-Public Use
  Company Number: CHPA2008US03349

PATIENT
  Age: 63 Year
  Sex: Female
  Weight: 62.6 kg

DRUGS (5)
  1. TRANSDERM SCOP [Suspect]
     Indication: MOTION SICKNESS
  2. SYNTHROID [Concomitant]
  3. CYTOMEL [Concomitant]
  4. FOSAMAX (ALLENDRONATE SODIUM) [Concomitant]
  5. PROZAC [Concomitant]

REACTIONS (10)
  - ACTIVITIES OF DAILY LIVING IMPAIRED [None]
  - ANXIETY [None]
  - CRYING [None]
  - DEPRESSION [None]
  - DIZZINESS [None]
  - DRY MOUTH [None]
  - HEADACHE [None]
  - IMPAIRED WORK ABILITY [None]
  - MEMORY IMPAIRMENT [None]
  - MENTAL DISORDER [None]
